FAERS Safety Report 17870620 (Version 1)
Quarter: 2020Q2

REPORT INFORMATION
  Report Type: Spontaneous
  Country: RU (occurrence: RU)
  Receive Date: 20200608
  Receipt Date: 20200608
  Transmission Date: 20200714
  Serious: Yes (Hospitalization, Other)
  Sender: FDA-Public Use
  Company Number: RU-ADIENNEP-2020AD000327

PATIENT
  Age: 9 Year
  Sex: Male

DRUGS (6)
  1. CYCLOPHOSPHAMIDE. [Suspect]
     Active Substance: CYCLOPHOSPHAMIDE
     Indication: PROPHYLAXIS AGAINST GRAFT VERSUS HOST DISEASE
     Dosage: 50 MG/KG
  2. TREOSULFAN [Suspect]
     Active Substance: TREOSULFAN
     Indication: ALLOGENIC STEM CELL TRANSPLANTATION
     Dosage: 42000 MG/M2
  3. THIOTEPA. [Suspect]
     Active Substance: THIOTEPA
     Indication: ALLOGENIC STEM CELL TRANSPLANTATION
     Dosage: 300 MG/M2
  4. FLUDARABINE [Suspect]
     Active Substance: FLUDARABINE PHOSPHATE
     Indication: ALLOGENIC STEM CELL TRANSPLANTATION
     Dosage: 150 MG/M2
  5. TACROLIMUS. [Suspect]
     Active Substance: TACROLIMUS
     Indication: PROPHYLAXIS AGAINST GRAFT VERSUS HOST DISEASE
  6. MYCOPHENOLATE MOFETIL. [Suspect]
     Active Substance: MYCOPHENOLATE MOFETIL
     Indication: PROPHYLAXIS AGAINST GRAFT VERSUS HOST DISEASE
     Dosage: 30 MG/KG

REACTIONS (18)
  - Cytomegalovirus viraemia [Recovered/Resolved]
  - Tremor [Recovered/Resolved]
  - Acute kidney injury [Unknown]
  - Blood lactate dehydrogenase increased [Unknown]
  - Cystitis haemorrhagic [Recovered/Resolved]
  - Chronic kidney disease [Unknown]
  - Blood creatinine increased [Recovered/Resolved]
  - Anuria [Recovered/Resolved]
  - Proteinuria [Unknown]
  - Pyrexia [Recovered/Resolved]
  - Insomnia [Recovered/Resolved]
  - Hypertension [Unknown]
  - Thrombotic microangiopathy [Unknown]
  - Haemoglobin decreased [Unknown]
  - Somnolence [Recovered/Resolved]
  - Platelet count decreased [Unknown]
  - Epistaxis [Unknown]
  - Haematuria [Unknown]
